FAERS Safety Report 14909947 (Version 1)
Quarter: 2018Q2

REPORT INFORMATION
  Report Type: Spontaneous
  Country: US (occurrence: US)
  Receive Date: 20180517
  Receipt Date: 20180517
  Transmission Date: 20180711
  Serious: No
  Sender: FDA-Public Use
  Company Number: US-TARO-2017TAR00939

PATIENT
  Age: 79 Year
  Sex: Male
  Weight: 68.27 kg

DRUGS (2)
  1. TOPICORT [Suspect]
     Active Substance: DESOXIMETASONE
     Indication: PRURITUS
     Dosage: 1-2 SPRAYS ON EACH SPOT, 1X/DAY
     Route: 061
     Dates: start: 20171026
  2. LATANOPROST. [Concomitant]
     Active Substance: LATANOPROST
     Dosage: 1 DROP PER EYE, 1X/DAY NIGHTLY
     Route: 047

REACTIONS (5)
  - Inappropriate schedule of drug administration [Not Recovered/Not Resolved]
  - Paraesthesia oral [Recovered/Resolved]
  - Oral discomfort [Recovered/Resolved]
  - Accidental exposure to product [Recovered/Resolved]
  - Product quality issue [Recovered/Resolved]

NARRATIVE: CASE EVENT DATE: 201710
